FAERS Safety Report 18256738 (Version 1)
Quarter: 2020Q3

REPORT INFORMATION
  Report Type: Spontaneous
  Country: US (occurrence: US)
  Receive Date: 20200910
  Receipt Date: 20200910
  Transmission Date: 20201103
  Serious: No
  Sender: FDA-Public Use
  Company Number: None

PATIENT

DRUGS (3)
  1. TAMSULOSIN [Suspect]
     Active Substance: TAMSULOSIN
  2. AMOXICILLIN. [Suspect]
     Active Substance: AMOXICILLIN
  3. ACYCLOVIR. [Suspect]
     Active Substance: ACYCLOVIR

REACTIONS (3)
  - Erectile dysfunction [None]
  - Monoplegia [None]
  - Anuria [None]

NARRATIVE: CASE EVENT DATE: 20170527
